FAERS Safety Report 7074994-2 (Version None)
Quarter: 2010Q4

REPORT INFORMATION
  Report Type: 
  Country: None (occurrence: None)
  Receive Date: 20101029
  Receipt Date: 20100201
  Transmission Date: 20110411
  Serious: No
  Sender: FDA-Public Use
  Company Number: US-WYE-H13361910

PATIENT
  Sex: Male
  Weight: 95.34 kg

DRUGS (3)
  1. ADVIL PM [Suspect]
     Route: 048
     Dates: start: 20100130, end: 20100131
  2. LIPITOR [Concomitant]
  3. NADOLOL [Concomitant]

REACTIONS (1)
  - DRUG INEFFECTIVE [None]
